FAERS Safety Report 4465446-4 (Version None)
Quarter: 2004Q4

REPORT INFORMATION
  Report Type: 
  Country: None (occurrence: None)
  Receive Date: 20041004
  Receipt Date: 20040923
  Transmission Date: 20050328
  Serious: Yes (Hospitalization)
  Sender: FDA-Public Use
  Company Number: AU-BRISTOL-MYERS SQUIBB COMPANY-12709630

PATIENT
  Sex: Female

DRUGS (2)
  1. AVAPRO-HCT [Suspect]
     Dosage: DURATION: 3-4 YEARS
  2. AVAPRO [Suspect]

REACTIONS (2)
  - CIRCULATORY COLLAPSE [None]
  - DIZZINESS [None]
